FAERS Safety Report 8145801-1 (Version None)
Quarter: 2012Q1

REPORT INFORMATION
  Report Type: 
  Country: None (occurrence: None)
  Receive Date: 20120217
  Receipt Date: 20110509
  Transmission Date: 20120608
  Serious: No
  Sender: FDA-Public Use
  Company Number: US-ABBOTT-11P-163-0724265-00

PATIENT
  Sex: Male
  Weight: 83.99 kg

DRUGS (5)
  1. METFORMIN HCL [Concomitant]
     Indication: PRODUCT USED FOR UNKNOWN INDICATION
  2. SIMCOR [Suspect]
     Indication: HIGH DENSITY LIPOPROTEIN
     Dosage: AT BEDTIME
     Dates: start: 20110503
  3. SIMCOR [Suspect]
     Indication: LOW DENSITY LIPOPROTEIN
  4. GLIPIZIDE [Concomitant]
     Indication: PRODUCT USED FOR UNKNOWN INDICATION
  5. GENERIC EXCEDRIN [Concomitant]
     Indication: PRODUCT USED FOR UNKNOWN INDICATION
     Dosage: AT BEDTIME

REACTIONS (2)
  - FLUSHING [None]
  - PRURITUS [None]
